FAERS Safety Report 23616988 (Version 1)
Quarter: 2024Q1

REPORT INFORMATION
  Report Type: Spontaneous
  Country: US (occurrence: US)
  Receive Date: 20240311
  Receipt Date: 20240311
  Transmission Date: 20240410
  Serious: Yes (Other)
  Sender: FDA-Public Use
  Company Number: US-BEH-2024169582

PATIENT
  Sex: Female

DRUGS (1)
  1. HUMATE-P [Suspect]
     Active Substance: HUMAN COAGULATION FACTOR VIII/VON WILLEBRAND FACTOR COMPLEX
     Indication: Acquired haemophilia
     Dosage: 4500 FACTOR 8 (F8) UNITS, BIW
     Route: 042
     Dates: start: 201905

REACTIONS (2)
  - Haemarthrosis [Not Recovered/Not Resolved]
  - Fall [Unknown]
